FAERS Safety Report 21806322 (Version 1)
Quarter: 2023Q1

REPORT INFORMATION
  Report Type: Spontaneous
  Country: RU (occurrence: RU)
  Receive Date: 20230102
  Receipt Date: 20230102
  Transmission Date: 20230418
  Serious: Yes (Other)
  Sender: FDA-Public Use
  Company Number: RU-009507513-2212RUS010770

PATIENT
  Sex: Male

DRUGS (1)
  1. LAGEVRIO [Suspect]
     Active Substance: MOLNUPIRAVIR
     Indication: COVID-19 treatment
     Dosage: 4 CAPSULES 2 TIMES A DAY
     Route: 048

REACTIONS (3)
  - Coronary artery bypass [Unknown]
  - Dyspepsia [Unknown]
  - Abdominal discomfort [Unknown]
